FAERS Safety Report 8726810 (Version 2)
Quarter: 2012Q4

REPORT INFORMATION
  Report Type: 
  Country: PA (occurrence: PA)
  Receive Date: 20120816
  Receipt Date: 20121109
  Transmission Date: 20130627
  Serious: Yes (Hospitalization)
  Sender: FDA-Public Use
  Company Number: PA-ROCHE-1099643

PATIENT
  Sex: Female
  Weight: 62.5 kg

DRUGS (4)
  1. XELODA [Suspect]
     Indication: GASTRIC CANCER
     Route: 048
     Dates: start: 20120806, end: 20120806
  2. CISPLATIN [Concomitant]
     Indication: GASTRIC CANCER
  3. OMEPRAZOL [Concomitant]
     Indication: PROPHYLAXIS
     Route: 048
  4. ACETAMINOPHEN/CODEINE [Concomitant]
     Indication: PAIN
     Route: 048

REACTIONS (1)
  - Peritonitis [Unknown]
